FAERS Safety Report 18903604 (Version 1)
Quarter: 2021Q1

REPORT INFORMATION
  Report Type: Spontaneous
  Country: US (occurrence: US)
  Receive Date: 20210216
  Receipt Date: 20210216
  Transmission Date: 20210420
  Serious: Yes (Other)
  Sender: FDA-Public Use
  Company Number: None

PATIENT
  Age: 69 Year
  Sex: Female
  Weight: 44 kg

DRUGS (1)
  1. OLMESARTAN 10 MG [Suspect]
     Active Substance: OLMESARTAN
     Route: 048
     Dates: start: 20171130, end: 20180531

REACTIONS (14)
  - Palpitations [None]
  - Flushing [None]
  - Balance disorder [None]
  - Chills [None]
  - Hot flush [None]
  - Heart rate irregular [None]
  - Drug ineffective [None]
  - Blood pressure fluctuation [None]
  - Nausea [None]
  - Diarrhoea [None]
  - Asthenia [None]
  - Rash macular [None]
  - Pollakiuria [None]
  - Mood swings [None]

NARRATIVE: CASE EVENT DATE: 20171130
